FAERS Safety Report 4635660-3 (Version None)
Quarter: 2005Q2

REPORT INFORMATION
  Report Type: 
  Country: None (occurrence: None)
  Receive Date: 20050413
  Receipt Date: 20050401
  Transmission Date: 20051028
  Serious: Yes (Other)
  Sender: FDA-Public Use
  Company Number: KII-2005-0015687

PATIENT
  Age: 28 Year
  Sex: Male

DRUGS (3)
  1. OXYCODONE HCL [Suspect]
     Dosage: ORAL
     Route: 048
  2. FENTANYL [Suspect]
     Dosage: ORAL
     Route: 048
  3. COCAINE (COCAINE) [Suspect]
     Dosage: INHALATION
     Route: 055

REACTIONS (5)
  - COMA [None]
  - INTENTIONAL MISUSE [None]
  - MULTIPLE DRUG OVERDOSE [None]
  - POLYSUBSTANCE ABUSE [None]
  - TACHYCARDIA [None]
